FAERS Safety Report 18487265 (Version 3)
Quarter: 2020Q4

REPORT INFORMATION
  Report Type: Spontaneous
  Country: US (occurrence: US)
  Receive Date: 20201110
  Receipt Date: 20201119
  Transmission Date: 20210114
  Serious: Yes (Other)
  Sender: FDA-Public Use
  Company Number: US-PFIZER INC-2019352316

PATIENT
  Age: 79 Year
  Sex: Male
  Weight: 113.4 kg

DRUGS (1)
  1. LYRICA [Suspect]
     Active Substance: PREGABALIN
     Indication: DIABETIC NEUROPATHY
     Dosage: 200 MG, 3X/DAY
     Route: 048

REACTIONS (15)
  - Ecchymosis [Unknown]
  - Off label use [Unknown]
  - Acute sinusitis [Unknown]
  - Arthralgia [Unknown]
  - Diabetic neuropathy [Unknown]
  - Lower urinary tract symptoms [Unknown]
  - Chronic kidney disease [Unknown]
  - Phlebitis [Unknown]
  - Nocturia [Unknown]
  - Benign prostatic hyperplasia [Unknown]
  - Pain in extremity [Unknown]
  - Cough [Unknown]
  - Essential hypertension [Unknown]
  - Type V hyperlipidaemia [Unknown]
  - Deep vein thrombosis [Unknown]
